FAERS Safety Report 20165707 (Version 1)
Quarter: 2021Q4

REPORT INFORMATION
  Report Type: Spontaneous
  Country: GB (occurrence: GB)
  Receive Date: 20211209
  Receipt Date: 20211209
  Transmission Date: 20220303
  Serious: Yes (Death)
  Sender: FDA-Public Use
  Company Number: None

PATIENT
  Sex: Female

DRUGS (3)
  1. KEYTRUDA [Suspect]
     Active Substance: PEMBROLIZUMAB
  2. CARBOPLATIN [Suspect]
     Active Substance: CARBOPLATIN
     Indication: Ill-defined disorder
  3. PEMETREXED [Suspect]
     Active Substance: PEMETREXED

REACTIONS (2)
  - Acute interstitial pneumonitis [Fatal]
  - Neonatal respiratory depression [Not Recovered/Not Resolved]
